FAERS Safety Report 6695881-5 (Version None)
Quarter: 2010Q2

REPORT INFORMATION
  Report Type: 
  Country: None (occurrence: None)
  Receive Date: 20100426
  Receipt Date: 20100219
  Transmission Date: 20101027
  Serious: No
  Sender: FDA-Public Use
  Company Number: A0846286A

PATIENT
  Age: 58 Year
  Sex: Female

DRUGS (4)
  1. ZOFRAN [Suspect]
     Indication: NAUSEA
     Dosage: 4MG AT NIGHT
     Dates: start: 20100112
  2. KAPIDEX [Suspect]
     Dosage: 60MG PER DAY
     Dates: start: 20100112
  3. SINEMET [Suspect]
     Indication: RESTLESS LEGS SYNDROME
     Dates: start: 20100112, end: 20100205
  4. CONCURRENT MEDICATIONS [Concomitant]

REACTIONS (1)
  - DIARRHOEA [None]
